FAERS Safety Report 9129749 (Version 1)
Quarter: 2013Q1

REPORT INFORMATION
  Report Type: Spontaneous
  Country: US (occurrence: US)
  Receive Date: 20130228
  Receipt Date: 20130228
  Transmission Date: 20140127
  Serious: Yes (Other)
  Sender: FDA-Public Use
  Company Number: US-PFIZER INC-2013065967

PATIENT
  Age: 73 Year
  Sex: Male
  Weight: 90.25 kg

DRUGS (4)
  1. DRISTAN COLD MULTI-SYMPTOM FORMULA [Suspect]
     Indication: HEADACHE
     Dosage: UNK,ONE TABLET IN MORNING, HALF IN AFTERNOON, ONE IN EVENING AND HALF AT BED TIME,4X/DAY
     Route: 048
  2. DRISTAN COLD MULTI-SYMPTOM FORMULA [Suspect]
     Indication: MIGRAINE
  3. TYLENOL 3 [Suspect]
     Indication: HEADACHE
     Dosage: UNK
  4. TYLENOL 3 [Suspect]
     Indication: MIGRAINE

REACTIONS (4)
  - Cerebrovascular accident [Unknown]
  - Somnolence [Unknown]
  - Drug ineffective [Unknown]
  - Therapeutic response unexpected [Unknown]
